FAERS Safety Report 23601436 (Version 1)
Quarter: 2024Q1

REPORT INFORMATION
  Report Type: Spontaneous
  Country: US (occurrence: None)
  Receive Date: 20240305
  Receipt Date: 20240305
  Transmission Date: 20240410
  Serious: No
  Sender: FDA-Public Use
  Company Number: None

PATIENT
  Age: 62 Year
  Sex: Male

DRUGS (1)
  1. VTAMA [Suspect]
     Active Substance: TAPINAROF
     Indication: Psoriasis
     Dosage: FREQUENCY : DAILY;?APPLY A TL IIN LAYER TO AFFECTED AREA(S) ONCE DAILY AS DIRECTED?
     Route: 061
     Dates: start: 202311

REACTIONS (1)
  - Myocardial infarction [None]
